FAERS Safety Report 6588636-3 (Version None)
Quarter: 2010Q1

REPORT INFORMATION
  Report Type: 
  Country: None (occurrence: None)
  Receive Date: 20100218
  Receipt Date: 20091123
  Transmission Date: 20100710
  Serious: No
  Sender: FDA-Public Use
  Company Number: US-ALLERGAN-0916356US

PATIENT
  Age: 38 Year
  Sex: Female

DRUGS (4)
  1. BOTOX COSMETIC [Suspect]
     Indication: SKIN WRINKLING
     Dosage: 46 UNITS, SINGLE
     Route: 030
     Dates: start: 20091119, end: 20091119
  2. BOTOX COSMETIC [Suspect]
     Dosage: UNK
     Route: 030
  3. BOTOX COSMETIC [Suspect]
     Dosage: UNK
     Route: 030
  4. ELAVIL [Concomitant]

REACTIONS (4)
  - CONTUSION [None]
  - INJECTION SITE PAIN [None]
  - INJECTION SITE REACTION [None]
  - SENSORY DISTURBANCE [None]
